FAERS Safety Report 11507334 (Version 1)
Quarter: 2015Q3

REPORT INFORMATION
  Report Type: Spontaneous
  Country: US (occurrence: None)
  Receive Date: 20150914
  Receipt Date: 20150914
  Transmission Date: 20151125
  Serious: Yes (Disabling)
  Sender: FDA-Public Use
  Company Number: None

PATIENT
  Age: 70 Year
  Sex: Female
  Weight: 64 kg

DRUGS (7)
  1. SIMVASTATIN (ZOCOR) [Concomitant]
  2. ANASTROZOLE (ARIMIDEX) [Concomitant]
  3. ADO-TRASTUZUMAB EMTANSINE [Suspect]
     Active Substance: ADO-TRASTUZUMAB EMTANSINE
     Indication: HER-2 POSITIVE BREAST CANCER
     Dosage: 1.4 MG/M2; DAY 1 AND DAY 8 Q
     Route: 042
  4. IPRATROPIUM (ATROVENT) [Concomitant]
  5. LISINOPRIL (PRINIVIL) [Concomitant]
  6. LIDOCAINE-PRILOCAINE (EMLA) [Concomitant]
  7. MIRALAX [Concomitant]
     Active Substance: POLYETHYLENE GLYCOL 3350

REACTIONS (1)
  - Hypoacusis [None]

NARRATIVE: CASE EVENT DATE: 20150911
